FAERS Safety Report 9087755 (Version 1)
Quarter: 2013Q1

REPORT INFORMATION
  Report Type: Spontaneous
  Country: CN (occurrence: CN)
  Receive Date: 20130201
  Receipt Date: 20130201
  Transmission Date: 20140127
  Serious: Yes (Hospitalization)
  Sender: FDA-Public Use
  Company Number: CN-ASTRAZENECA-2013SE00988

PATIENT
  Age: 74 Year
  Sex: Female

DRUGS (5)
  1. BETALOC ZOK [Suspect]
     Indication: HYPERTENSION
     Route: 048
     Dates: start: 201212
  2. BETALOC ZOK [Suspect]
     Indication: EXTRASYSTOLES
     Route: 048
     Dates: start: 201212
  3. BETALOC ZOK [Suspect]
     Indication: ATRIAL FIBRILLATION
     Route: 048
     Dates: start: 201212
  4. DIOVAN [Concomitant]
     Indication: HYPERTENSION
     Route: 048
  5. CHINESE MEDICINE [Concomitant]
     Indication: CARDIAC DISORDER
     Route: 048

REACTIONS (5)
  - Abdominal distension [Recovering/Resolving]
  - Heart rate decreased [Unknown]
  - Abdominal pain [Recovering/Resolving]
  - Drug ineffective [Unknown]
  - Atrial fibrillation [Unknown]
